FAERS Safety Report 4451874-X (Version None)
Quarter: 2004Q3

REPORT INFORMATION
  Report Type: 
  Country: None (occurrence: None)
  Receive Date: 20040915
  Receipt Date: 20040915
  Transmission Date: 20050211
  Serious: Yes (Life-Threatening, Hospitalization)
  Sender: FDA-Public Use
  Company Number: None

PATIENT
  Age: 49 Year
  Sex: Male
  Weight: 114.4 kg

DRUGS (5)
  1. ACETAMINOPHEN [Suspect]
  2. HYDROCODONE 5 MG/APAP [Concomitant]
  3. SIMVASTATIN [Concomitant]
  4. INDOMETHACIN [Concomitant]
  5. CARBAMAZEPINE [Concomitant]

REACTIONS (2)
  - MENTAL STATUS CHANGES [None]
  - OVERDOSE [None]
